FAERS Safety Report 22226274 (Version 1)
Quarter: 2023Q2

REPORT INFORMATION
  Report Type: Report from Study
  Country: US (occurrence: US)
  Receive Date: 20230419
  Receipt Date: 20230419
  Transmission Date: 20230721
  Serious: Yes (Other)
  Sender: FDA-Public Use
  Company Number: US-JNJFOC-20230421670

PATIENT
  Sex: Female

DRUGS (6)
  1. SPRAVATO [Suspect]
     Active Substance: ESKETAMINE
     Indication: Depression
     Dosage: 56 MG, 2 DOSES
     Dates: start: 20210317, end: 20210319
  2. SPRAVATO [Suspect]
     Active Substance: ESKETAMINE
     Dosage: 84 MG, 21 DOSES
     Dates: start: 20210326, end: 20220603
  3. SPRAVATO [Suspect]
     Active Substance: ESKETAMINE
     Dosage: 56 MG, 1 DOSE
     Dates: start: 20220610, end: 20220610
  4. SPRAVATO [Suspect]
     Active Substance: ESKETAMINE
     Dosage: 84 MG, 3 DOSES
     Dates: start: 20220617, end: 20221129
  5. SPRAVATO [Suspect]
     Active Substance: ESKETAMINE
     Dosage: 56 MG, 1 DOSE
     Dates: start: 20221230, end: 20221230
  6. SPRAVATO [Suspect]
     Active Substance: ESKETAMINE
     Dosage: 84 MG, 2 DOSES
     Dates: start: 20230125, end: 20230208

REACTIONS (1)
  - COVID-19 [Recovering/Resolving]
